FAERS Safety Report 11101196 (Version 3)
Quarter: 2015Q2

REPORT INFORMATION
  Report Type: Spontaneous
  Country: CH (occurrence: CH)
  Receive Date: 20150508
  Receipt Date: 20150618
  Transmission Date: 20150821
  Serious: Yes (Hospitalization, Other)
  Sender: FDA-Public Use
  Company Number: CH-UCBSA-2015010420

PATIENT
  Age: 63 Year
  Sex: Female

DRUGS (13)
  1. METOJECT [Suspect]
     Active Substance: METHOTREXATE SODIUM
     Indication: PRODUCT USED FOR UNKNOWN INDICATION
     Dosage: 30 MG, WEEKLY (QW)
     Dates: start: 20141013, end: 20150325
  2. NOVALGIN [Concomitant]
     Active Substance: METAMIZOLE SODIUM
     Indication: PRODUCT USED FOR UNKNOWN INDICATION
     Dosage: STRENGTH:20, 8X/DAY
  3. CATAPRESAN [Concomitant]
     Active Substance: CLONIDINE
     Indication: PRODUCT USED FOR UNKNOWN INDICATION
     Dosage: UNK, 2X/DAY (BID),STRENGTH:125 MG
  4. METOJECT [Concomitant]
     Active Substance: METHOTREXATE SODIUM
     Indication: PRODUCT USED FOR UNKNOWN INDICATION
     Dosage: 10 MG, WEEKLY (QW)
     Dates: start: 20140429, end: 20140915
  5. FRAGMIN [Concomitant]
     Active Substance: DALTEPARIN SODIUM
     Indication: PRODUCT USED FOR UNKNOWN INDICATION
     Dosage: STRENGTH:15000 E,UNK,ONCE DAILY
  6. CIMZIA [Suspect]
     Active Substance: CERTOLIZUMAB PEGOL
     Indication: CROHN^S DISEASE
     Dosage: 200 MG, EV 2 WEEKS(QOW)
     Route: 062
     Dates: start: 20140422, end: 20150325
  7. KYTRIL [Concomitant]
     Active Substance: GRANISETRON HYDROCHLORIDE
     Indication: PRODUCT USED FOR UNKNOWN INDICATION
     Dosage: STRENGTH :2MG,2 MG, 2X/DAY (BID)
  8. METOJECT [Concomitant]
     Active Substance: METHOTREXATE SODIUM
     Dosage: 20 MG, WEEKLY (QW)
     Dates: start: 20140922, end: 20141006
  9. METO ZEROK [Concomitant]
     Active Substance: METOPROLOL SUCCINATE
     Indication: PRODUCT USED FOR UNKNOWN INDICATION
     Dosage: 25 MG, 2X/DAY (BID)
  10. DUROGESIC [Concomitant]
     Active Substance: FENTANYL
     Indication: PRODUCT USED FOR UNKNOWN INDICATION
     Dosage: STRENGTH: 100MG,EV 3 DAYS
  11. ZOLPIDEM [Concomitant]
     Active Substance: ZOLPIDEM\ZOLPIDEM TARTRATE
     Indication: INSOMNIA
     Dosage: STRENGTH:10 MG
  12. CIMZIA [Suspect]
     Active Substance: CERTOLIZUMAB PEGOL
     Dosage: 400 MG, WEEKLY (QW)
     Route: 058
     Dates: start: 20150423, end: 2015
  13. METOJECT [Suspect]
     Active Substance: METHOTREXATE SODIUM
     Dosage: 30 MG INJECTION ADMINISTERED ON 23-AP-2015
     Dates: start: 201504, end: 2015

REACTIONS (13)
  - Nausea [Unknown]
  - Dizziness [Unknown]
  - Blood pressure increased [Unknown]
  - Feeling of body temperature change [Unknown]
  - Cystitis [Unknown]
  - Dysuria [Unknown]
  - Haemorrhoids thrombosed [Recovering/Resolving]
  - Arthritis enteropathic [Not Recovered/Not Resolved]
  - Renal pain [Unknown]
  - Pyrexia [Unknown]
  - Pneumonia [Unknown]
  - Diarrhoea [Unknown]
  - Blood urine present [Unknown]

NARRATIVE: CASE EVENT DATE: 20150320
